FAERS Safety Report 11375126 (Version 1)
Quarter: 2015Q3

REPORT INFORMATION
  Report Type: Spontaneous
  Country: JP (occurrence: JP)
  Receive Date: 20150813
  Receipt Date: 20150813
  Transmission Date: 20151125
  Serious: Yes (Hospitalization, Disabling, Other)
  Sender: FDA-Public Use
  Company Number: JP-AMGEN-JPNSP2015082520

PATIENT
  Age: 58 Year
  Sex: Female

DRUGS (14)
  1. LANDSEN [Suspect]
     Active Substance: CLONAZEPAM
     Indication: CANCER PAIN
     Dosage: 2 MG, TID
     Route: 048
     Dates: start: 20150602
  2. CALONAL [Concomitant]
     Active Substance: ACETAMINOPHEN
     Indication: CANCER PAIN
     Dosage: 600 MG, QID
     Route: 048
     Dates: start: 20150602
  3. OXINORM /00045603/ [Suspect]
     Active Substance: OXYCODONE HYDROCHLORIDE
     Indication: CANCER PAIN
     Dosage: 40 MG, QID
     Route: 048
     Dates: start: 20150602
  4. MYSLEE [Suspect]
     Active Substance: ZOLPIDEM TARTRATE
     Indication: INSOMNIA
     Dosage: 10 MG, QD
     Route: 048
     Dates: start: 20150602
  5. TRYPTANOL                          /00002202/ [Suspect]
     Active Substance: AMITRIPTYLINE
     Indication: CANCER PAIN
     Dosage: 10 MG, BID
     Route: 048
     Dates: start: 20150602
  6. KETALAR [Suspect]
     Active Substance: KETAMINE HYDROCHLORIDE
     Indication: CANCER PAIN
     Dosage: 50 MG, QID
     Route: 048
     Dates: start: 20150602
  7. AMOXAN [Suspect]
     Active Substance: AMOXAPINE
     Indication: CANCER PAIN
     Dosage: 25 MG, QD
     Route: 048
     Dates: start: 20150602
  8. GABALON [Suspect]
     Active Substance: BACLOFEN
     Indication: MYALGIA
     Dosage: 5 MG, QD
     Route: 048
     Dates: start: 20150602
  9. RANMARK [Suspect]
     Active Substance: DENOSUMAB
     Indication: METASTASES TO BONE
     Dosage: 120 MG, UNK
     Route: 058
     Dates: start: 20150608
  10. FENTANYL. [Suspect]
     Active Substance: FENTANYL
     Indication: CANCER PAIN
     Dosage: 16.8 MG, ONCE EVERY 3 D
     Route: 050
     Dates: start: 20150602
  11. DENOTAS [Concomitant]
     Active Substance: CALCIUM CARBONATE\CHOLECALCIFEROL\MAGNESIUM CARBONATE
     Indication: PROPHYLAXIS
     Dosage: 2 DF, QD
     Route: 048
     Dates: start: 20150608
  12. RELIFEN [Suspect]
     Active Substance: NABUMETONE
     Indication: CANCER PAIN
     Dosage: 800 MG, QD
     Route: 048
     Dates: start: 20150602, end: 20150709
  13. ROZEREM [Suspect]
     Active Substance: RAMELTEON
     Indication: INSOMNIA
     Dosage: 8 MG, QD
     Route: 048
     Dates: start: 20150602
  14. MONILAC [Concomitant]
     Active Substance: LACTULOSE
     Indication: CONSTIPATION
     Dosage: 5 ML, QD
     Route: 048
     Dates: start: 20150602

REACTIONS (5)
  - Hand fracture [Unknown]
  - Fall [None]
  - Face oedema [Recovered/Resolved]
  - Gingivitis [Recovered/Resolved]
  - Toothache [None]

NARRATIVE: CASE EVENT DATE: 20150705
